FAERS Safety Report 20633013 (Version 2)
Quarter: 2022Q2

REPORT INFORMATION
  Report Type: Report from Study
  Country: IT (occurrence: IT)
  Receive Date: 20220324
  Receipt Date: 20220425
  Transmission Date: 20220720
  Serious: Yes (Hospitalization, Other)
  Sender: FDA-Public Use
  Company Number: IT-ROCHE-2168226

PATIENT
  Sex: Female
  Weight: 55 kg

DRUGS (40)
  1. DOCETAXEL [Suspect]
     Active Substance: DOCETAXEL
     Indication: HER2 positive breast cancer
     Dosage: 75 MG/M2, EVERY 3 WEEKS
     Route: 042
     Dates: start: 20180507, end: 20180619
  2. EXEMESTANE [Suspect]
     Active Substance: EXEMESTANE
     Indication: HER2 positive breast cancer
     Dosage: 1 MG, 1X/DAY
     Route: 048
     Dates: start: 20190213, end: 20191030
  3. PACLITAXEL [Suspect]
     Active Substance: PACLITAXEL
     Indication: HER2 positive breast cancer
     Dosage: 80 MG/M2, WEEKLY
     Route: 042
     Dates: start: 20180731
  4. ADO-TRASTUZUMAB EMTANSINE [Suspect]
     Active Substance: ADO-TRASTUZUMAB EMTANSINE
     Indication: HER2 positive breast cancer
     Dosage: 3.6 MG/KG, EVERY 3 WEEKS
     Route: 042
     Dates: start: 20191009
  5. PERTUZUMAB [Suspect]
     Active Substance: PERTUZUMAB
     Indication: HER2 positive breast cancer
     Dosage: 840 MG, EVERY 3 WEEKS
     Route: 042
     Dates: start: 20180507, end: 20180529
  6. TRASTUZUMAB [Suspect]
     Active Substance: TRASTUZUMAB
     Indication: HER2 positive breast cancer
     Dosage: 440 MG, EVERY 3 WEEKS
     Route: 042
     Dates: start: 20180507, end: 20180529
  7. CAPECITABINE [Suspect]
     Active Substance: CAPECITABINE
     Indication: HER2 positive breast cancer
     Dosage: 2000 MG/M2, 1X/DAY
     Route: 048
     Dates: start: 20200220, end: 20201001
  8. LAPATINIB [Suspect]
     Active Substance: LAPATINIB
     Indication: HER2 positive breast cancer
     Dosage: 1250 MG, 1X/DAY
     Route: 048
     Dates: start: 20200220
  9. NERATINIB [Suspect]
     Active Substance: NERATINIB
     Indication: HER2 positive breast cancer
     Dosage: 240 MG, 1X/DAY
     Route: 048
     Dates: start: 20210317
  10. DENOSUMAB [Suspect]
     Active Substance: DENOSUMAB
     Indication: HER2 positive breast cancer
     Dosage: 60 MG, MONTHLY (OTHER IMMUNOTHERAPY)
     Route: 058
     Dates: start: 20181009
  11. VINORELBINE [Suspect]
     Active Substance: VINORELBINE TARTRATE
     Indication: HER2 positive breast cancer
     Dosage: 30 MG/M2
     Route: 042
     Dates: start: 20201016
  12. DEXAMETHASONE [Concomitant]
     Active Substance: DEXAMETHASONE
     Dosage: UNK
     Dates: start: 20180502
  13. CALCIUM CARBONATE\CHOLECALCIFEROL [Concomitant]
     Active Substance: CALCIUM CARBONATE\CHOLECALCIFEROL
     Dosage: UNK
     Dates: start: 20190615, end: 20210715
  14. RAMIPRIL [Concomitant]
     Active Substance: RAMIPRIL
     Indication: Hypertension
     Dosage: UNK
     Dates: start: 20190701
  15. PANTOPRAZOLE [Concomitant]
     Active Substance: PANTOPRAZOLE
     Dosage: UNK
     Dates: start: 20191015, end: 20210322
  16. RANITIDINE [Concomitant]
     Active Substance: RANITIDINE
     Dosage: UNK
     Dates: start: 20180507, end: 20181002
  17. MYCOSTATIN [Concomitant]
     Active Substance: NYSTATIN
     Dosage: UNK
  18. UREA [Concomitant]
     Active Substance: UREA
     Indication: Skin toxicity
     Dosage: UNK
     Dates: start: 20200415, end: 20201215
  19. METOCLOPRAMIDE [Concomitant]
     Active Substance: METOCLOPRAMIDE
     Dosage: UNK
     Dates: start: 20180625, end: 20180731
  20. CHOLECALCIFEROL [Concomitant]
     Active Substance: CHOLECALCIFEROL
     Dosage: UNK
     Dates: start: 20180727
  21. POLASE [ASPARTIC ACID;MAGNESIUM CITRATE;POTASSIUM GLUCONATE] [Concomitant]
     Dosage: UNK
  22. LEVOFLOXACIN [Concomitant]
     Active Substance: LEVOFLOXACIN
     Dosage: UNK
  23. ENALAPRIL MALEATE [Concomitant]
     Active Substance: ENALAPRIL MALEATE
     Dosage: UNK
  24. AMIKACIN [Concomitant]
     Active Substance: AMIKACIN
     Dosage: UNK
  25. FLUCONAZOLE [Concomitant]
     Active Substance: FLUCONAZOLE
     Dosage: UNK
  26. CHLORPHENIRAMINE [Concomitant]
     Active Substance: CHLORPHENIRAMINE
     Dosage: UNK
     Dates: start: 20180507, end: 20210204
  27. ZOLOFT [Concomitant]
     Active Substance: SERTRALINE HYDROCHLORIDE
     Dosage: UNK
     Dates: start: 20160803
  28. LEVOTHYROXINE SODIUM [Concomitant]
     Active Substance: LEVOTHYROXINE SODIUM
     Dosage: UNK
  29. LEVOTHYROXINE SODIUM [Concomitant]
     Active Substance: LEVOTHYROXINE SODIUM
  30. DEXAMETHASONE [Concomitant]
     Active Substance: DEXAMETHASONE
     Dosage: UNK
     Dates: start: 20180507, end: 20181002
  31. TEICOPLANIN [Concomitant]
     Active Substance: TEICOPLANIN
     Dosage: UNK
  32. BISOPROLOL FUMARATE [Concomitant]
     Active Substance: BISOPROLOL FUMARATE
     Indication: Hypertension
     Dosage: UNK
     Dates: start: 20190701
  33. CEFEPIME [Concomitant]
     Active Substance: CEFEPIME HYDROCHLORIDE
     Dosage: UNK
  34. FENTANYL [Concomitant]
     Active Substance: FENTANYL
     Dosage: UNK
  35. CALCIUM CARBONATE [Concomitant]
     Active Substance: CALCIUM CARBONATE
     Dosage: UNK
     Dates: start: 20180727
  36. CALCIUM CARBONATE [Concomitant]
     Active Substance: CALCIUM CARBONATE
     Dosage: UNK
     Dates: start: 20180915, end: 20190615
  37. ARIXTRA [Concomitant]
     Active Substance: FONDAPARINUX SODIUM
     Indication: Thrombosis
     Dosage: UNK
     Dates: start: 20200806, end: 20210224
  38. COVID-19 VACCINE [Concomitant]
     Dates: start: 20210414, end: 20210414
  39. FAMOTIDINA [Concomitant]
     Indication: Gastrooesophageal reflux disease
     Dosage: UNK
     Dates: start: 20210414
  40. CHLORPHENIRAMINE MALEATE [Concomitant]
     Active Substance: CHLORPHENIRAMINE MALEATE
     Dates: start: 20180507, end: 20210204

REACTIONS (18)
  - Dysphagia [Recovered/Resolved]
  - Febrile neutropenia [Recovered/Resolved]
  - Hypokalaemia [Recovered/Resolved]
  - Hypokalaemia [Recovered/Resolved]
  - Performance status decreased [Recovered/Resolved]
  - Performance status decreased [Not Recovered/Not Resolved]
  - Arthralgia [Recovered/Resolved]
  - Dysaesthesia [Recovered/Resolved]
  - Dysgeusia [Recovered/Resolved]
  - Dysgeusia [Recovered/Resolved]
  - Nausea [Recovered/Resolved]
  - Nausea [Recovered/Resolved]
  - Fatigue [Recovered/Resolved]
  - Diarrhoea [Recovered/Resolved]
  - Diarrhoea [Recovered/Resolved]
  - Diarrhoea [Recovered/Resolved]
  - Diarrhoea [Recovered/Resolved]
  - Palmar-plantar erythrodysaesthesia syndrome [Recovered/Resolved]

NARRATIVE: CASE EVENT DATE: 20180615
